FAERS Safety Report 4359088-9 (Version None)
Quarter: 2004Q2

REPORT INFORMATION
  Report Type: 
  Country: None (occurrence: None)
  Receive Date: 20040517
  Receipt Date: 20020516
  Transmission Date: 20050107
  Serious: Yes (Hospitalization, Disabling)
  Sender: FDA-Public Use
  Company Number: US-MERCK-0205USA02092

PATIENT
  Age: 55 Year
  Sex: Female
  Weight: 77 kg

DRUGS (9)
  1. VIOXX [Suspect]
     Indication: ARTHRITIS
     Route: 048
     Dates: start: 20001025
  2. VIOXX [Suspect]
     Route: 048
     Dates: start: 20010101, end: 20010710
  3. LAMISIL [Concomitant]
     Indication: ONYCHOMYCOSIS
     Route: 065
  4. SOMA [Concomitant]
     Route: 065
  5. MOTRIN [Concomitant]
     Route: 065
  6. VIOXX [Suspect]
     Indication: PAIN
     Route: 048
     Dates: end: 20001001
  7. VIOXX [Suspect]
     Route: 048
     Dates: start: 20001025
  8. VIOXX [Suspect]
     Route: 048
     Dates: start: 20010101, end: 20010710
  9. VIOXX [Suspect]
     Route: 048
     Dates: end: 20001001

REACTIONS (23)
  - AORTIC CALCIFICATION [None]
  - BLOOD CHLORIDE INCREASED [None]
  - BLOOD PRESSURE INCREASED [None]
  - CARDIOMEGALY [None]
  - CAROTID ARTERY STENOSIS [None]
  - CEREBRAL INFARCTION [None]
  - CEREBROVASCULAR ACCIDENT [None]
  - CHEST PAIN [None]
  - COUGH [None]
  - DEPRESSION [None]
  - FALL [None]
  - HYPERTENSION [None]
  - IMPAIRED WORK ABILITY [None]
  - ISCHAEMIA [None]
  - JOINT SWELLING [None]
  - LYMPHOEDEMA [None]
  - MASTOIDITIS [None]
  - NAUSEA [None]
  - NERVOUS SYSTEM DISORDER [None]
  - OEDEMA PERIPHERAL [None]
  - SINUS DISORDER [None]
  - TRANSIENT ISCHAEMIC ATTACK [None]
  - VISUAL ACUITY REDUCED [None]
